FAERS Safety Report 13356839 (Version 1)
Quarter: 2017Q1

REPORT INFORMATION
  Report Type: Spontaneous
  Country: US (occurrence: US)
  Receive Date: 20170321
  Receipt Date: 20170321
  Transmission Date: 20170429
  Serious: Yes (Other)
  Sender: FDA-Public Use
  Company Number: US-ELI_LILLY_AND_COMPANY-US201210001330

PATIENT
  Sex: Female

DRUGS (5)
  1. CYMBALTA [Suspect]
     Active Substance: DULOXETINE HYDROCHLORIDE
     Indication: FIBROMYALGIA
     Dosage: 30 MG, BID
     Route: 048
     Dates: start: 20120919, end: 20121108
  2. CYMBALTA [Suspect]
     Active Substance: DULOXETINE HYDROCHLORIDE
     Dosage: 60 MG, QD
     Route: 065
  3. CYMBALTA [Suspect]
     Active Substance: DULOXETINE HYDROCHLORIDE
     Dosage: 30 MG, FOR ONE WEEK THEN INCREASE TO 60 MG
     Route: 065
  4. ALPRAZOLAM. [Concomitant]
     Active Substance: ALPRAZOLAM
     Indication: ANXIETY
     Dosage: 1 MG, AT NIGHT
     Dates: end: 20120925
  5. CYMBALTA [Suspect]
     Active Substance: DULOXETINE HYDROCHLORIDE
     Dosage: 60 MG, QD
     Route: 065

REACTIONS (22)
  - Somnolence [Recovered/Resolved]
  - Vomiting [Unknown]
  - Anxiety [Unknown]
  - Tinnitus [Unknown]
  - Confusional state [Unknown]
  - Tremor [Unknown]
  - Hyperhidrosis [Unknown]
  - Suicidal ideation [Unknown]
  - Lethargy [Unknown]
  - Affect lability [Unknown]
  - Drug withdrawal syndrome [Unknown]
  - Fatigue [Unknown]
  - Sensory disturbance [Unknown]
  - Dry mouth [Unknown]
  - Insomnia [Unknown]
  - Nervousness [Unknown]
  - Paraesthesia [Unknown]
  - Headache [Unknown]
  - Irritability [Unknown]
  - Dysphoria [Unknown]
  - Agitation [Unknown]
  - Dizziness [Unknown]
